FAERS Safety Report 4485396-7 (Version None)
Quarter: 2004Q4

REPORT INFORMATION
  Report Type: 
  Country: None (occurrence: None)
  Receive Date: 20041025
  Receipt Date: 20041025
  Transmission Date: 20050328
  Serious: Yes (Other)
  Sender: FDA-Public Use
  Company Number: None

PATIENT
  Age: 30 Year
  Sex: Female
  Weight: 81.6475 kg

DRUGS (2)
  1. LEVAQUIN [Suspect]
     Indication: SINUSITIS
     Dosage: 500 MG 1XPER DAY ORAL
     Route: 048
     Dates: start: 20040802, end: 20040902
  2. LEVAQUIN [Suspect]
     Indication: SINUSITIS
     Dosage: 500 MG 1XPER DAY ORAL
     Route: 048
     Dates: start: 20041002, end: 20041007

REACTIONS (2)
  - ARTHRALGIA [None]
  - MYALGIA [None]
